FAERS Safety Report 17285981 (Version 1)
Quarter: 2020Q1

REPORT INFORMATION
  Report Type: Report from Study
  Country: None (occurrence: CO)
  Receive Date: 20200118
  Receipt Date: 20200118
  Transmission Date: 20200409
  Serious: Yes (Hospitalization)
  Sender: FDA-Public Use
  Company Number: CO-ABBVIE-20K-036-3235791-00

PATIENT
  Age: 1 Month
  Sex: Male
  Weight: 5 kg

DRUGS (1)
  1. SYNAGIS [Suspect]
     Active Substance: PALIVIZUMAB
     Indication: PREMATURE BABY
     Route: 030
     Dates: start: 20191029

REACTIONS (2)
  - Vomiting [Unknown]
  - Obstruction gastric [Recovering/Resolving]

NARRATIVE: CASE EVENT DATE: 20191201
